FAERS Safety Report 8185591-X (Version None)
Quarter: 2012Q1

REPORT INFORMATION
  Report Type: 
  Country: None (occurrence: None)
  Receive Date: 20120305
  Receipt Date: 20120227
  Transmission Date: 20120608
  Serious: Yes (Other)
  Sender: FDA-Public Use
  Company Number: PHHY2012FR014771

PATIENT
  Age: 40 Year
  Sex: Female

DRUGS (3)
  1. CYCLOSPORINE [Concomitant]
     Indication: EPISCLERITIS
  2. SOLU-MEDROL [Concomitant]
  3. GILENYA [Suspect]
     Indication: MULTIPLE SCLEROSIS
     Dosage: 0.5 MG, DAILY
     Route: 048
     Dates: start: 20111213, end: 20120210

REACTIONS (3)
  - EXTRASYSTOLES [None]
  - MULTIPLE SCLEROSIS RELAPSE [None]
  - PALPITATIONS [None]
